FAERS Safety Report 16894555 (Version 4)
Quarter: 2019Q4

REPORT INFORMATION
  Report Type: Spontaneous
  Country: US (occurrence: US)
  Receive Date: 20191008
  Receipt Date: 20191106
  Transmission Date: 20200122
  Serious: Yes (Hospitalization, Other)
  Sender: FDA-Public Use
  Company Number: US-PFIZER INC-2019428876

PATIENT
  Age: 65 Year
  Sex: Female
  Weight: 97.98 kg

DRUGS (6)
  1. XELJANZ [Suspect]
     Active Substance: TOFACITINIB CITRATE
     Indication: PSORIATIC ARTHROPATHY
     Dosage: 5 MG, 2X/DAY (TAKE ONE IN THE MORNING AND ONE AT NIGHT)
     Route: 048
     Dates: start: 201905
  2. METHOTREXATE. [Concomitant]
     Active Substance: METHOTREXATE
     Dosage: 25 MG, WEEKLY
     Dates: start: 201905
  3. PREDNISONE. [Concomitant]
     Active Substance: PREDNISONE
     Indication: PSORIATIC ARTHROPATHY
     Dosage: 13 MG, 1X/DAY (SEVERAL TABLETS FOR A TOTAL OF 13MG PER DAY)
     Route: 048
     Dates: start: 2009
  4. OTEZLA [Suspect]
     Active Substance: APREMILAST
     Indication: PSORIATIC ARTHROPATHY
     Dosage: 30 MG, 2X/DAY (ONE IN THE MORNING AND ONE IN THE NIGHT)
     Route: 048
  5. NAPROXEN. [Concomitant]
     Active Substance: NAPROXEN
     Indication: PSORIATIC ARTHROPATHY
     Dosage: 500 MG, AS NEEDED (ONE TO TWO TIMES A DAY; SECOND TIME AS NEEDED)
  6. METHOTREXATE. [Concomitant]
     Active Substance: METHOTREXATE
     Indication: PSORIATIC ARTHROPATHY
     Dosage: 20 MG, UNK

REACTIONS (8)
  - Pneumonia bacterial [Recovered/Resolved]
  - Contraindicated product administered [Unknown]
  - Gastrooesophageal reflux disease [Recovered/Resolved]
  - Cough [Unknown]
  - Nasopharyngitis [Unknown]
  - Feeling abnormal [Unknown]
  - Wheezing [Unknown]
  - Haemoptysis [Recovered/Resolved]

NARRATIVE: CASE EVENT DATE: 20190907
